FAERS Safety Report 6173804-5 (Version None)
Quarter: 2009Q2

REPORT INFORMATION
  Report Type: 
  Country: None (occurrence: None)
  Receive Date: 20090430
  Receipt Date: 20090427
  Transmission Date: 20091009
  Serious: Yes (Hospitalization)
  Sender: FDA-Public Use
  Company Number: US-BAYER-200915960NA

PATIENT
  Age: 55 Year
  Sex: Male

DRUGS (4)
  1. LEVITRA [Suspect]
     Indication: ERECTILE DYSFUNCTION
     Dosage: AS USED: 10 MG  UNIT DOSE: 10 MG
     Dates: start: 20080101
  2. PLAVIX [Concomitant]
  3. ATENOLOL [Concomitant]
  4. GLUCOPHAGE [Concomitant]

REACTIONS (2)
  - ERECTILE DYSFUNCTION [None]
  - MYOCARDIAL INFARCTION [None]
